FAERS Safety Report 15281252 (Version 1)
Quarter: 2018Q4

REPORT INFORMATION
  Report Type: Spontaneous
  Country: FR (occurrence: FR)
  Receive Date: 20180815
  Receipt Date: 20180815
  Transmission Date: 20190204
  Serious: Yes (Other)
  Sender: FDA-Public Use
  Company Number: FR-SA-2018SA153748

PATIENT
  Age: 68 Year
  Sex: Male

DRUGS (3)
  1. AMAREL [Suspect]
     Active Substance: GLIMEPIRIDE
     Indication: DIABETES MELLITUS
     Dosage: 1 DF, QD
     Route: 048
     Dates: start: 2012
  2. SIMVASTATINE ALMUS [Suspect]
     Active Substance: SIMVASTATIN
     Indication: BLOOD CHOLESTEROL INCREASED
     Route: 048
     Dates: start: 2012
  3. METFORMINE [METFORMIN HYDROCHLORIDE] [Suspect]
     Active Substance: METFORMIN HYDROCHLORIDE
     Indication: DIABETES MELLITUS
     Dosage: 1 DF, QD
     Route: 048
     Dates: start: 2012

REACTIONS (1)
  - Lichenoid keratosis [Not Recovered/Not Resolved]

NARRATIVE: CASE EVENT DATE: 2015
